FAERS Safety Report 9291328 (Version 4)
Quarter: 2013Q4

REPORT INFORMATION
  Report Type: Spontaneous
  Country: GB (occurrence: None)
  Receive Date: 20130513
  Receipt Date: 20131029
  Transmission Date: 20140711
  Serious: Yes (Hospitalization, Other)
  Sender: FDA-Public Use
  Company Number: 1700760

PATIENT
  Age: 27 Year
  Sex: Female
  Weight: 70 kg

DRUGS (13)
  1. METHOTREXATE [Suspect]
     Indication: PRODUCT USED FOR UNKNOWN INDICATION
  2. TOCILIZUMAB [Suspect]
     Indication: PRODUCT USED FOR UNKNOWN INDICATION
     Route: 042
  3. TOCILIZUMAB [Suspect]
     Indication: RHEUMATOID ARTHRITIS
     Route: 042
  4. RITUXIMAB [Suspect]
     Indication: PRODUCT USED FOR UNKNOWN INDICATION
     Route: 042
  5. PREDNISOLONE [Concomitant]
  6. THYROXINE [Concomitant]
  7. GABAPENTIN [Concomitant]
  8. CITALOPRAM [Concomitant]
  9. INSULIN [Concomitant]
  10. HYDROXYCHLOROQUINE [Concomitant]
  11. OXYCODONE [Concomitant]
  12. LEVOTHYROXINE [Concomitant]
  13. BISOPROLOL [Concomitant]

REACTIONS (6)
  - Pelvic inflammatory disease [None]
  - Nausea [None]
  - Alopecia [None]
  - Pigmentation disorder [None]
  - Endometriosis [None]
  - Cellulitis [None]
